FAERS Safety Report 9301778 (Version 1)
Quarter: 2013Q2

REPORT INFORMATION
  Report Type: Spontaneous
  Country: US (occurrence: US)
  Receive Date: 20130521
  Receipt Date: 20130521
  Transmission Date: 20140414
  Serious: No
  Sender: FDA-Public Use
  Company Number: US-TEVA-336331USA

PATIENT
  Age: 62 Year
  Sex: Female
  Weight: 45.85 kg

DRUGS (3)
  1. ACTIQ [Suspect]
     Indication: MUSCULAR DYSTROPHY
     Route: 002
     Dates: start: 2010, end: 2012
  2. ACTIQ [Suspect]
     Indication: SPINAL MUSCULAR ATROPHY
  3. THYROID THERAPY [Concomitant]
     Indication: THYROID DISORDER
     Route: 048
     Dates: start: 2008

REACTIONS (4)
  - Amnesia [Recovered/Resolved]
  - Pain [Not Recovered/Not Resolved]
  - Crying [Not Recovered/Not Resolved]
  - Off label use [Unknown]
